FAERS Safety Report 5625564-1 (Version None)
Quarter: 2008Q1

REPORT INFORMATION
  Report Type: 
  Country: None (occurrence: None)
  Receive Date: 20080214
  Receipt Date: 20080130
  Transmission Date: 20080703
  Serious: Yes (Hospitalization)
  Sender: FDA-Public Use
  Company Number: HU-BAYER-HU-2005-025955

PATIENT
  Age: 37 Year
  Sex: Female

DRUGS (1)
  1. IUS SHG04209B [Suspect]
     Indication: CONTRACEPTION
     Route: 015
     Dates: start: 20050706, end: 20051123

REACTIONS (2)
  - ABDOMINAL PAIN [None]
  - ADHESIOLYSIS [None]
